FAERS Safety Report 6968859-1 (Version None)
Quarter: 2010Q3

REPORT INFORMATION
  Report Type: 
  Country: None (occurrence: None)
  Receive Date: 20100903
  Receipt Date: 20100903
  Transmission Date: 20110219
  Serious: No
  Sender: FDA-Public Use
  Company Number: None

PATIENT
  Age: 49 Year
  Sex: Female
  Weight: 127.0072 kg

DRUGS (2)
  1. OXYCONTIN [Suspect]
     Indication: BACK PAIN
     Dosage: 2 TABLETS 2 X DAILY
     Dates: start: 20060101, end: 20100801
  2. OXYCONTIN [Suspect]
     Indication: FIBROMYALGIA
     Dosage: 2 TABLETS 2 X DAILY
     Dates: start: 20060101, end: 20100801

REACTIONS (3)
  - MEDICATION RESIDUE [None]
  - NO THERAPEUTIC RESPONSE [None]
  - PRODUCT SUBSTITUTION ISSUE [None]
